FAERS Safety Report 9928839 (Version 2)
Quarter: 2014Q1

REPORT INFORMATION
  Report Type: Spontaneous
  Country: US (occurrence: US)
  Receive Date: 20140227
  Receipt Date: 20140325
  Transmission Date: 20141002
  Serious: No
  Sender: FDA-Public Use
  Company Number: US-PFIZER INC-2014055857

PATIENT
  Age: 59 Year
  Sex: Female

DRUGS (2)
  1. EFFEXOR [Suspect]
     Dosage: UNK
  2. EFFEXOR XR [Suspect]
     Dosage: UNK

REACTIONS (2)
  - Drug hypersensitivity [Unknown]
  - Somnolence [Unknown]
